FAERS Safety Report 8394446-7 (Version None)
Quarter: 2012Q2

REPORT INFORMATION
  Report Type: 
  Country: None (occurrence: None)
  Receive Date: 20120525
  Receipt Date: 20120525
  Transmission Date: 20120825
  Serious: Yes (Other)
  Sender: FDA-Public Use
  Company Number: None

PATIENT
  Age: 47 Year
  Sex: Male
  Weight: 90.2658 kg

DRUGS (2)
  1. PROVIGIL [Suspect]
     Indication: MULTIPLE SCLEROSIS
     Dosage: 200MG DAILY PO
     Route: 048
     Dates: start: 20110101, end: 20120301
  2. PROVIGIL [Suspect]
     Indication: FATIGUE
     Dosage: 200MG DAILY PO
     Route: 048
     Dates: start: 20110101, end: 20120301

REACTIONS (1)
  - HANGOVER [None]
